FAERS Safety Report 23513979 (Version 1)
Quarter: 2024Q1

REPORT INFORMATION
  Report Type: Spontaneous
  Country: CZ (occurrence: CZ)
  Receive Date: 20240212
  Receipt Date: 20240212
  Transmission Date: 20240409
  Serious: Yes (Death, Hospitalization, Disabling, Other)
  Sender: FDA-Public Use
  Company Number: CZ-STADA-01186695

PATIENT
  Age: 17 Year
  Sex: Female

DRUGS (1)
  1. VERAPAMIL [Suspect]
     Active Substance: VERAPAMIL HYDROCHLORIDE
     Indication: Product used for unknown indication
     Dosage: 3200 MILLIGRAM, 1 TOTAL
     Route: 048
     Dates: start: 202211, end: 202211

REACTIONS (6)
  - Sepsis [Fatal]
  - Compartment syndrome [Fatal]
  - Cardio-respiratory arrest [Fatal]
  - Limb amputation [Fatal]
  - Intentional overdose [Fatal]
  - Suicidal ideation [Unknown]

NARRATIVE: CASE EVENT DATE: 20221101
